FAERS Safety Report 14221682 (Version 6)
Quarter: 2019Q1

REPORT INFORMATION
  Report Type: Spontaneous
  Country: US (occurrence: US)
  Receive Date: 20171124
  Receipt Date: 20190212
  Transmission Date: 20190417
  Serious: Yes (Hospitalization)
  Sender: FDA-Public Use
  Company Number: US-ACTELION-A-NJ2017-163082

PATIENT
  Age: 69 Year
  Sex: Female

DRUGS (4)
  1. SILDENAFIL. [Concomitant]
     Active Substance: SILDENAFIL
  2. INSULINE [Concomitant]
     Active Substance: INSULIN NOS
  3. OPSUMIT [Suspect]
     Active Substance: MACITENTAN
     Indication: PULMONARY ARTERIAL HYPERTENSION
     Dosage: UNK
     Route: 048
  4. OPSUMIT [Suspect]
     Active Substance: MACITENTAN
     Dosage: 10 MG, UNK
     Route: 048
     Dates: start: 20160928

REACTIONS (8)
  - Gallbladder operation [Recovered/Resolved]
  - Cholelithiasis [Unknown]
  - Oxygen consumption [Unknown]
  - Malaise [Unknown]
  - Diabetes mellitus [Unknown]
  - Eye haemorrhage [Unknown]
  - Lung disorder [Unknown]
  - Arthropathy [Unknown]
